FAERS Safety Report 23977353 (Version 1)
Quarter: 2024Q2

REPORT INFORMATION
  Report Type: Spontaneous
  Country: US (occurrence: US)
  Receive Date: 20240614
  Receipt Date: 20240614
  Transmission Date: 20240715
  Serious: No
  Sender: FDA-Public Use
  Company Number: US-ViiV Healthcare Limited-112367

PATIENT
  Sex: Male

DRUGS (2)
  1. TIVICAY [Suspect]
     Active Substance: DOLUTEGRAVIR SODIUM
     Indication: Product used for unknown indication
     Dosage: 50 MG, QD (ONCE DAILY)
  2. TRUVADA [Suspect]
     Active Substance: EMTRICITABINE\TENOFOVIR DISOPROXIL FUMARATE
     Indication: Product used for unknown indication
     Dosage: UNK UNK, QD (200MG/300MG ONCE DAILY)

REACTIONS (9)
  - Balanoposthitis [Unknown]
  - Skin exfoliation [Unknown]
  - Genital dryness [Unknown]
  - Cheilitis [Unknown]
  - Thirst [Not Recovered/Not Resolved]
  - Salivary hyposecretion [Not Recovered/Not Resolved]
  - Dry mouth [Not Recovered/Not Resolved]
  - Oral discomfort [Not Recovered/Not Resolved]
  - Off label use [Unknown]
